FAERS Safety Report 16121690 (Version 1)
Quarter: 2019Q1

REPORT INFORMATION
  Report Type: Spontaneous
  Country: FR (occurrence: FR)
  Receive Date: 20190327
  Receipt Date: 20190327
  Transmission Date: 20190418
  Serious: Yes (Hospitalization)
  Sender: FDA-Public Use
  Company Number: FR-AXELLIA-002359

PATIENT
  Age: 42 Year
  Sex: Male
  Weight: 103 kg

DRUGS (21)
  1. LAROXYL [Concomitant]
     Active Substance: AMITRIPTYLINE HYDROCHLORIDE
     Dosage: STRENGTH 50 MG
     Route: 048
  2. METHADONE [Concomitant]
     Active Substance: METHADONE HYDROCHLORIDE
     Route: 048
  3. SERESTA [Concomitant]
     Active Substance: OXAZEPAM
     Dosage: SEE COMMENT
     Route: 048
  4. OXYCODONE/OXYCODONE HYDROCHLORIDE/OXYCODONE PECTINATE/OXYCODONE TEREPHTHALATE [Concomitant]
     Route: 048
  5. DOLIPRANE [Concomitant]
     Active Substance: ACETAMINOPHEN
     Route: 048
     Dates: start: 20190124
  6. OXYNORM [Concomitant]
     Active Substance: OXYCODONE HYDROCHLORIDE
     Dosage: 1 AMPOULE
     Route: 042
     Dates: start: 20190125, end: 20190125
  7. MACROGOL/POTASSIUM CHLORIDE/SODIUM BICARBONATE/SODIUM CHLORIDE [Concomitant]
     Route: 048
     Dates: start: 20190124
  8. LOVENOX [Concomitant]
     Active Substance: ENOXAPARIN SODIUM
     Route: 058
     Dates: start: 20190125, end: 20190127
  9. KETAMINE [Concomitant]
     Active Substance: KETAMINE
     Route: 042
     Dates: start: 20190125, end: 20190126
  10. EDUCTYL [Concomitant]
     Active Substance: POTASSIUM BITARTRATE\SODIUM BICARBONATE
     Route: 054
     Dates: start: 20190125, end: 20190211
  11. VANCOMYCIN [Suspect]
     Active Substance: VANCOMYCIN
     Indication: STAPHYLOCOCCAL INFECTION
     Route: 042
     Dates: start: 20190125, end: 20190128
  12. TAZOBACTAM/TAZOBACTAM SODIUM [Suspect]
     Active Substance: TAZOBACTAM SODIUM
     Indication: STAPHYLOCOCCAL INFECTION
     Dosage: SEE COMMENT
     Route: 042
     Dates: start: 20190125, end: 20190130
  13. SERETIDE [Concomitant]
     Active Substance: FLUTICASONE PROPIONATE\SALMETEROL XINAFOATE
     Dosage: 2-0-2
     Route: 055
  14. MIANSERIN [Concomitant]
     Active Substance: MIANSERIN
     Route: 048
  15. PIPERACILLIN. [Suspect]
     Active Substance: PIPERACILLIN SODIUM
     Indication: STAPHYLOCOCCAL INFECTION
     Dosage: SEE COMMENT
     Route: 042
     Dates: start: 20190125, end: 20190130
  16. GENTAMICIN. [Suspect]
     Active Substance: GENTAMICIN
     Indication: STAPHYLOCOCCAL INFECTION
     Route: 042
     Dates: start: 20190126, end: 20190127
  17. DROPERIDOL/DROPERIDOL LACTATE [Concomitant]
     Active Substance: DROPERIDOL
     Route: 042
     Dates: start: 20190125, end: 20190127
  18. PREGABALIN. [Concomitant]
     Active Substance: PREGABALIN
     Route: 048
     Dates: start: 20190125, end: 20190128
  19. SETOFILM [Concomitant]
     Active Substance: ONDANSETRON
     Dosage: STRENGTH 4 MG
     Route: 048
     Dates: start: 20190124
  20. SEEBRI BREEZHALER [Concomitant]
     Active Substance: GLYCOPYRROLATE
     Dosage: SEE COMMENT
     Route: 055
  21. ESOMEPRAZOLE/ESOMEPRAZOLE MAGNESIUM/ESOMEPRAZOLE SODIUM [Concomitant]
     Dosage: SEE COMMENT
     Route: 048

REACTIONS (3)
  - Overdose [Unknown]
  - Acute kidney injury [Recovered/Resolved]
  - Renal tubular necrosis [Recovered/Resolved]

NARRATIVE: CASE EVENT DATE: 20190126
